FAERS Safety Report 9320588 (Version 2)
Quarter: 2013Q2

REPORT INFORMATION
  Report Type: Spontaneous
  Country: SK (occurrence: SK)
  Receive Date: 20130531
  Receipt Date: 20130613
  Transmission Date: 20140414
  Serious: Yes (Other)
  Sender: FDA-Public Use
  Company Number: SK-US-EMD SERONO, INC.-7213013

PATIENT
  Age: 16 Year
  Sex: Male
  Weight: 57 kg

DRUGS (1)
  1. SAIZEN [Suspect]
     Indication: SMALL FOR DATES BABY
     Route: 058
     Dates: start: 20090420, end: 20130506

REACTIONS (4)
  - Prolactinoma [Not Recovered/Not Resolved]
  - Decreased appetite [Unknown]
  - Weight decreased [Recovering/Resolving]
  - Dizziness [Unknown]
